FAERS Safety Report 15838231 (Version 2)
Quarter: 2019Q1

REPORT INFORMATION
  Report Type: Report from Study
  Country: CA (occurrence: CA)
  Receive Date: 20190117
  Receipt Date: 20190201
  Transmission Date: 20190417
  Serious: Yes (Other)
  Sender: FDA-Public Use
  Company Number: CA-JNJFOC-20190117254

PATIENT
  Age: 14 Year
  Sex: Female
  Weight: 51.5 kg

DRUGS (2)
  1. SIMPONI [Suspect]
     Active Substance: GOLIMUMAB
     Indication: COLITIS ULCERATIVE
     Route: 058
     Dates: start: 20181121
  2. SIMPONI [Suspect]
     Active Substance: GOLIMUMAB
     Indication: COLITIS ULCERATIVE
     Route: 058
     Dates: start: 20181213

REACTIONS (5)
  - Product use issue [Unknown]
  - Drug ineffective [Unknown]
  - Haematochezia [Unknown]
  - Off label use [Unknown]
  - Mineral supplementation [Unknown]

NARRATIVE: CASE EVENT DATE: 20181121
